FAERS Safety Report 5730130-3 (Version None)
Quarter: 2008Q2

REPORT INFORMATION
  Report Type: 
  Country: None (occurrence: None)
  Receive Date: 20080502
  Receipt Date: 20080416
  Transmission Date: 20081010
  Serious: Yes (Hospitalization)
  Sender: FDA-Public Use
  Company Number: 190003L08FRA

PATIENT
  Age: 31 Year
  Sex: Female

DRUGS (2)
  1. MENOTROPHIN (MENOTROPHIN) [Suspect]
     Indication: ANOVULATORY CYCLE
     Dosage: 2 DOSAGE FORMS, DAYS, INTRAMUSCULAR
     Route: 030
     Dates: start: 19880101
  2. CHORIONIC GONADOTROPIN [Suspect]
     Indication: ANOVULATORY CYCLE
     Dosage: 5000 IU, ONCE

REACTIONS (12)
  - ABORTION INDUCED [None]
  - ACTIVATED PARTIAL THROMBOPLASTIN TIME SHORTENED [None]
  - BRAIN OEDEMA [None]
  - CEREBRAL ARTERY OCCLUSION [None]
  - CEREBRAL INFARCTION [None]
  - EXTENSOR PLANTAR RESPONSE [None]
  - GENERAL PHYSICAL HEALTH DETERIORATION [None]
  - HEMIPLEGIA [None]
  - HYPONATRAEMIA [None]
  - HYPOPROTEINAEMIA [None]
  - INTRACRANIAL PRESSURE INCREASED [None]
  - OVARIAN HYPERSTIMULATION SYNDROME [None]
